FAERS Safety Report 7796718-3 (Version None)
Quarter: 2011Q4

REPORT INFORMATION
  Report Type: 
  Country: None (occurrence: None)
  Receive Date: 20111005
  Receipt Date: 20110925
  Transmission Date: 20120403
  Serious: Yes (Other)
  Sender: FDA-Public Use
  Company Number: US-JNJFOC-20111000877

PATIENT
  Sex: Female
  Weight: 72.58 kg

DRUGS (6)
  1. ATENOLOL [Concomitant]
     Indication: MITRAL VALVE DISEASE
     Dosage: DAILY
     Route: 048
  2. NUCYNTA ER [Suspect]
     Indication: PAIN
     Dosage: 3-5 DAY
     Route: 048
     Dates: start: 20110918, end: 20110924
  3. METHYLPHENIDATE [Concomitant]
     Indication: ANXIETY
     Route: 048
  4. NUCYNTA [Suspect]
     Indication: PAIN
     Dosage: 3-5 A DAY
     Route: 048
     Dates: start: 20110823, end: 20110917
  5. LEXAPRO [Concomitant]
     Dosage: ONCE A DAY
     Route: 048
  6. DIAZEPAM [Concomitant]
     Dosage: AS NEEDED
     Route: 048

REACTIONS (7)
  - WITHDRAWAL SYNDROME [None]
  - COLD SWEAT [None]
  - DYSPNOEA [None]
  - TEMPERATURE REGULATION DISORDER [None]
  - CHEST PAIN [None]
  - PAIN [None]
  - DIZZINESS [None]
